FAERS Safety Report 21283538 (Version 2)
Quarter: 2022Q3

REPORT INFORMATION
  Report Type: Spontaneous
  Country: US (occurrence: US)
  Receive Date: 20220901
  Receipt Date: 20220929
  Transmission Date: 20221027
  Serious: Yes (Death, Hospitalization, Other)
  Sender: FDA-Public Use
  Company Number: US-009507513-2208USA010040

PATIENT
  Age: 71 Year
  Sex: Male

DRUGS (1)
  1. KEYTRUDA [Suspect]
     Active Substance: PEMBROLIZUMAB
     Indication: Malignant melanoma
     Dosage: EVERY 3 WEEKS, INFUSION
     Route: 042
     Dates: start: 202007, end: 20210428

REACTIONS (12)
  - Sepsis [Fatal]
  - Cellulitis [Fatal]
  - Diabetes mellitus [Fatal]
  - Malnutrition [Fatal]
  - Lymphoedema [Unknown]
  - Adverse event [Unknown]
  - Pain [Unknown]
  - Pruritus [Unknown]
  - Skin neoplasm excision [Unknown]
  - Yellow skin [Unknown]
  - Adverse drug reaction [Unknown]
  - Drug ineffective [Unknown]

NARRATIVE: CASE EVENT DATE: 20201101
